FAERS Safety Report 9954125 (Version 1)
Quarter: 2014Q1

REPORT INFORMATION
  Report Type: Report from Study
  Country: US (occurrence: US)
  Receive Date: 20140304
  Receipt Date: 20140304
  Transmission Date: 20141002
  Serious: No
  Sender: FDA-Public Use
  Company Number: US-ABBVIE-13P-163-1079865-00

PATIENT
  Age: 28 Year
  Sex: Male

DRUGS (4)
  1. HUMIRA [Suspect]
     Indication: CROHN^S DISEASE
     Dates: start: 20121207
  2. PROAIR [Concomitant]
     Indication: ASTHMA
  3. ADVAIR HFA [Concomitant]
     Indication: ASTHMA
     Dosage: DAILY
  4. PRILOSEC [Concomitant]
     Indication: DYSPEPSIA

REACTIONS (2)
  - Insomnia [Recovered/Resolved]
  - Injection site pruritus [Recovered/Resolved]
